FAERS Safety Report 10392266 (Version 1)
Quarter: 2014Q3

REPORT INFORMATION
  Report Type: Spontaneous
  Country: GB (occurrence: GB)
  Receive Date: 20140819
  Receipt Date: 20140819
  Transmission Date: 20150326
  Serious: Yes (Other)
  Sender: FDA-Public Use
  Company Number: GB-BRISTOL-MYERS SQUIBB COMPANY-21286596

PATIENT
  Age: 52 Year
  Sex: Female
  Weight: 72 kg

DRUGS (4)
  1. VOLTAROL [Concomitant]
     Active Substance: DICLOFENAC SODIUM
     Indication: ARTHRALGIA
     Dosage: IRREGULAR USE
     Route: 062
  2. PANTOPRAZOLE [Concomitant]
     Active Substance: PANTOPRAZOLE SODIUM
     Dosage: IRREGULAR USE 6MONTHS
     Route: 048
  3. ZOPICLONE [Concomitant]
     Active Substance: ZOPICLONE
     Indication: SLEEP DISORDER
     Dosage: IRREGULAR USE
     Route: 048
  4. ADCORTYL [Suspect]
     Active Substance: TRIAMCINOLONE ACETONIDE
     Indication: OSTEOARTHRITIS
     Route: 014
     Dates: start: 20140701, end: 20140701

REACTIONS (8)
  - Hypoaesthesia oral [Recovered/Resolved]
  - Paraesthesia [Recovered/Resolved]
  - Paraesthesia oral [Recovered/Resolved]
  - Dysphonia [Recovered/Resolved]
  - Erythema [Recovered/Resolved]
  - Pharyngeal oedema [Recovered/Resolved]
  - Deafness transitory [Recovered/Resolved]
  - Urticaria [Recovered/Resolved]

NARRATIVE: CASE EVENT DATE: 20140701
